FAERS Safety Report 13500672 (Version 3)
Quarter: 2019Q1

REPORT INFORMATION
  Report Type: Spontaneous
  Country: US (occurrence: US)
  Receive Date: 20170501
  Receipt Date: 20190207
  Transmission Date: 20190417
  Serious: Yes (Hospitalization)
  Sender: FDA-Public Use
  Company Number: US-BAUSCH-BL-2017-011384

PATIENT
  Sex: Male

DRUGS (4)
  1. PREDNISONE. [Suspect]
     Active Substance: PREDNISONE
     Indication: PRODUCT USED FOR UNKNOWN INDICATION
     Route: 048
  2. MESTINON [Suspect]
     Active Substance: PYRIDOSTIGMINE BROMIDE
     Indication: MYASTHENIA GRAVIS
     Dosage: MAXIMUM 3 TO 4 TABLETS DAILY
     Route: 048
  3. IMURAN [Suspect]
     Active Substance: AZATHIOPRINE
     Indication: MYASTHENIA GRAVIS
     Route: 065
     Dates: start: 201612, end: 201702
  4. MESTINON [Suspect]
     Active Substance: PYRIDOSTIGMINE BROMIDE
     Indication: MYASTHENIA GRAVIS
     Dosage: IN THE MORNING
     Route: 048
     Dates: start: 2015

REACTIONS (4)
  - Abdominal pain upper [Recovering/Resolving]
  - Treatment noncompliance [Unknown]
  - Condition aggravated [Recovering/Resolving]
  - Product colour issue [Unknown]
